FAERS Safety Report 25743057 (Version 1)
Quarter: 2025Q3

REPORT INFORMATION
  Report Type: Spontaneous
  Country: US (occurrence: US)
  Receive Date: 20250830
  Receipt Date: 20250830
  Transmission Date: 20251021
  Serious: Yes (Death)
  Sender: AMGEN
  Company Number: US-AMGEN-USASP2025168862

PATIENT

DRUGS (4)
  1. RITUXIMAB [Suspect]
     Active Substance: RITUXIMAB
     Indication: B-cell lymphoma
     Dosage: 375 MILLIGRAM/SQ. METER, QWK (DURING CYCLE 1)
     Route: 040
  2. RITUXIMAB [Suspect]
     Active Substance: RITUXIMAB
     Route: 040
  3. LENALIDOMIDE [Concomitant]
     Active Substance: LENALIDOMIDE
     Indication: B-cell lymphoma
     Route: 048
  4. EVORPACEPT [Concomitant]
     Active Substance: EVORPACEPT
     Indication: B-cell lymphoma
     Route: 040

REACTIONS (1)
  - B-cell lymphoma [Fatal]
